FAERS Safety Report 15302702 (Version 3)
Quarter: 2018Q4

REPORT INFORMATION
  Report Type: Spontaneous
  Country: US (occurrence: US)
  Receive Date: 20180821
  Receipt Date: 20181009
  Transmission Date: 20190204
  Serious: Yes (Other)
  Sender: FDA-Public Use
  Company Number: US-LEXICON PHARMACEUTICALS, INC-18-1606-00995

PATIENT
  Sex: Male

DRUGS (20)
  1. TELOTRISTAT ETHYL [Suspect]
     Active Substance: TELOTRISTAT ETHYL
     Route: 048
     Dates: start: 2018
  2. ZOFRAN [Concomitant]
     Active Substance: ONDANSETRON HYDROCHLORIDE
  3. LISINOPRIL. [Concomitant]
     Active Substance: LISINOPRIL
  4. FUROSEMIDE. [Concomitant]
     Active Substance: FUROSEMIDE
  5. EMLA [Concomitant]
     Active Substance: LIDOCAINE\PRILOCAINE
  6. LOMOTIL [Concomitant]
     Active Substance: ATROPINE SULFATE\DIPHENOXYLATE HYDROCHLORIDE
  7. ROBITUSSIN- DM [Concomitant]
  8. XELODA [Concomitant]
     Active Substance: CAPECITABINE
  9. SOMATULINE [Concomitant]
     Active Substance: LANREOTIDE ACETATE
  10. ACETEMIN [Concomitant]
  11. SANDOSTATIN [Concomitant]
     Active Substance: OCTREOTIDE ACETATE
  12. TEMODAR [Concomitant]
     Active Substance: TEMOZOLOMIDE
  13. ALBUTEROL SULFATE. [Concomitant]
     Active Substance: ALBUTEROL SULFATE
  14. TELOTRISTAT ETHYL [Suspect]
     Active Substance: TELOTRISTAT ETHYL
     Indication: CARCINOID TUMOUR
     Route: 048
     Dates: start: 20170311, end: 20180810
  15. PRILOSEC [Concomitant]
     Active Substance: OMEPRAZOLE MAGNESIUM
  16. ALDACTONE [Concomitant]
     Active Substance: SPIRONOLACTONE
  17. BENADRYL [Concomitant]
     Active Substance: DIPHENHYDRAMINE HYDROCHLORIDE
  18. COREG [Concomitant]
     Active Substance: CARVEDILOL
  19. HEPARIN [Concomitant]
     Active Substance: HEPARIN SODIUM
  20. HYDROCHLOROTHIAZIDE. [Concomitant]
     Active Substance: HYDROCHLOROTHIAZIDE

REACTIONS (4)
  - Abdominal pain [Unknown]
  - Constipation [Unknown]
  - Diarrhoea [Not Recovered/Not Resolved]
  - Neoplasm progression [Unknown]

NARRATIVE: CASE EVENT DATE: 2018
